FAERS Safety Report 18012272 (Version 3)
Quarter: 2020Q3

REPORT INFORMATION
  Report Type: Spontaneous
  Country: US (occurrence: US)
  Receive Date: 20200713
  Receipt Date: 20200924
  Transmission Date: 20201103
  Serious: Yes (Other)
  Sender: FDA-Public Use
  Company Number: US-GILEAD-2020-0477169

PATIENT

DRUGS (3)
  1. ATRIPLA [Suspect]
     Active Substance: EFAVIRENZ\EMTRICITABINE\TENOFOVIR DISOPROXIL FUMARATE
     Indication: HIV INFECTION
     Dosage: UNK
     Route: 048
     Dates: start: 2004
  2. STRIBILD [Suspect]
     Active Substance: COBICISTAT\ELVITEGRAVIR\EMTRICITABINE\TENOFOVIR DISOPROXIL FUMARATE
     Indication: HIV INFECTION
     Dosage: UNK
     Route: 048
     Dates: start: 2004
  3. TRUVADA [Suspect]
     Active Substance: EMTRICITABINE\TENOFOVIR DISOPROXIL FUMARATE
     Indication: HIV INFECTION
     Dosage: UNK
     Route: 048
     Dates: start: 2004

REACTIONS (12)
  - Renal failure [Not Recovered/Not Resolved]
  - Anhedonia [Unknown]
  - Bone density decreased [Unknown]
  - Tooth loss [Not Recovered/Not Resolved]
  - Bone density abnormal [Not Recovered/Not Resolved]
  - Osteonecrosis [Unknown]
  - Fracture [Not Recovered/Not Resolved]
  - Anxiety [Unknown]
  - Renal failure [Unknown]
  - Osteoporosis [Not Recovered/Not Resolved]
  - Pain [Unknown]
  - Emotional distress [Unknown]
